FAERS Safety Report 6808971-0 (Version None)
Quarter: 2010Q2

REPORT INFORMATION
  Report Type: 
  Country: None (occurrence: None)
  Receive Date: 20100630
  Receipt Date: 20100121
  Transmission Date: 20101027
  Serious: No
  Sender: FDA-Public Use
  Company Number: US-PFIZER INC-2009210974

PATIENT
  Sex: Male

DRUGS (2)
  1. XANAX [Suspect]
     Indication: ANXIETY
     Dosage: 3-4MG/DAY
     Dates: start: 19830101
  2. XANAX [Suspect]
     Indication: OBSESSIVE-COMPULSIVE DISORDER

REACTIONS (3)
  - CONDITION AGGRAVATED [None]
  - DRUG INEFFECTIVE [None]
  - STRESS [None]
